FAERS Safety Report 14176391 (Version 4)
Quarter: 2018Q1

REPORT INFORMATION
  Report Type: Report from Study
  Country: AU (occurrence: AU)
  Receive Date: 20171109
  Receipt Date: 20180214
  Transmission Date: 20180508
  Serious: Yes (Other)
  Sender: FDA-Public Use
  Company Number: AU-REGENERON PHARMACEUTICALS, INC.-2017-26210

PATIENT

DRUGS (1)
  1. EYLEA [Suspect]
     Active Substance: AFLIBERCEPT
     Indication: NEOVASCULAR AGE-RELATED MACULAR DEGENERATION
     Dosage: UNK UNK, Q8WK
     Route: 031
     Dates: start: 20161001

REACTIONS (12)
  - Visual impairment [Recovered/Resolved]
  - Fatigue [Unknown]
  - Injection site pain [Unknown]
  - Eye operation [Unknown]
  - Injection site infection [Unknown]
  - Influenza [Unknown]
  - Weight decreased [Unknown]
  - Arthritis [Unknown]
  - Vitreous floaters [Recovered/Resolved]
  - Vision blurred [Recovered/Resolved]
  - Kidney infection [Unknown]
  - Osteoarthritis [Unknown]

NARRATIVE: CASE EVENT DATE: 2017
